FAERS Safety Report 13350394 (Version 1)
Quarter: 2017Q1

REPORT INFORMATION
  Report Type: Spontaneous
  Country: DE (occurrence: DE)
  Receive Date: 20170320
  Receipt Date: 20170320
  Transmission Date: 20170429
  Serious: Yes (Hospitalization, Other)
  Sender: FDA-Public Use
  Company Number: DE-BAYER-2017-048128

PATIENT
  Age: 55 Year
  Sex: Male
  Weight: 95 kg

DRUGS (4)
  1. MOXIFLOXACIN ORAL [Suspect]
     Active Substance: MOXIFLOXACIN
     Indication: BRONCHITIS
     Dosage: 400 MG, QD
     Route: 048
     Dates: start: 20170210, end: 20170213
  2. AMBROXOL [Concomitant]
     Active Substance: AMBROXOL
     Dosage: UNK
     Dates: start: 20170203, end: 20170210
  3. ROXI [Concomitant]
     Active Substance: UNSPECIFIED INGREDIENT
     Indication: BRONCHITIS
     Dosage: 2 DF, QD
     Dates: start: 20170214, end: 20170220
  4. CEFUROXIM [Concomitant]
     Active Substance: CEFUROXIME
     Indication: BRONCHITIS
     Dosage: 2 DF, QD
     Dates: start: 20170204, end: 20170207

REACTIONS (11)
  - Dizziness [Unknown]
  - Muscular weakness [Unknown]
  - Dehydration [Unknown]
  - Arrhythmia [Unknown]
  - Malaise [Unknown]
  - Tremor [Unknown]
  - Restlessness [Unknown]
  - Asthenia [Unknown]
  - Blood pressure increased [Unknown]
  - Anxiety [Unknown]
  - Circulatory collapse [Unknown]

NARRATIVE: CASE EVENT DATE: 201702
